FAERS Safety Report 11581776 (Version 1)
Quarter: 2015Q4

REPORT INFORMATION
  Report Type: Spontaneous
  Country: US (occurrence: US)
  Receive Date: 20151001
  Receipt Date: 20151001
  Transmission Date: 20160304
  Serious: No
  Sender: FDA-Public Use
  Company Number: US-ROCHE-668477

PATIENT
  Age: 43 Year
  Sex: Female

DRUGS (3)
  1. COPEGUS [Suspect]
     Active Substance: RIBAVIRIN
     Indication: HEPATITIS C
     Route: 048
  2. PEGASYS [Suspect]
     Active Substance: PEGINTERFERON ALFA-2A
     Indication: HEPATITIS C
     Dosage: PRE-FILLED SYRINGE
     Route: 058
  3. RIBAVIRIN. [Suspect]
     Active Substance: RIBAVIRIN
     Indication: HEPATITIS C
     Dosage: NOTE: DIVIDED DOSES
     Route: 048

REACTIONS (12)
  - Fatigue [Not Recovered/Not Resolved]
  - Platelet count decreased [Not Recovered/Not Resolved]
  - Abulia [Recovering/Resolving]
  - Pain [Not Recovered/Not Resolved]
  - Disturbance in attention [Recovering/Resolving]
  - Vision blurred [Recovering/Resolving]
  - White blood cell count decreased [Recovering/Resolving]
  - Photosensitivity reaction [Recovering/Resolving]
  - Feeling abnormal [Recovering/Resolving]
  - Headache [Not Recovered/Not Resolved]
  - Confusional state [Recovering/Resolving]
  - Nausea [Recovering/Resolving]

NARRATIVE: CASE EVENT DATE: 20090901
